FAERS Safety Report 7916947-5 (Version None)
Quarter: 2011Q4

REPORT INFORMATION
  Report Type: 
  Country: None (occurrence: None)
  Receive Date: 20111114
  Receipt Date: 20111028
  Transmission Date: 20120403
  Serious: Yes (Other)
  Sender: FDA-Public Use
  Company Number: 021197

PATIENT
  Age: 72 Year
  Sex: Female
  Weight: 59 kg

DRUGS (15)
  1. METHYCOBAL (MECOBALAMIN) [Concomitant]
  2. BRONUCK (BROMFENAC SODIUM) [Concomitant]
  3. CARNACULIN (PANCREAS EXTRACT) [Concomitant]
  4. ADONA (CARBAZOCHROME SODIUM SULFONATE) [Concomitant]
  5. RINDERON A (BETAMETHASONE SODIUM PHOSPHATE, NEOMYCIN SULFATE) [Concomitant]
  6. MIKELAN (CARTEOLOL HYDROCHLORIDE) [Concomitant]
  7. LOMEFLOXACIN HYDROCHLORIDE (LOMEFLOXACIN HYDROCHLORIDE) [Concomitant]
  8. MACUGEN [Suspect]
     Indication: MACULAR OEDEMA
     Dosage: 0.3 MG INTO THE LEFT EYE, INTROCULAR
     Route: 031
     Dates: start: 20090219, end: 20090402
  9. XALATAN [Concomitant]
  10. MUCOSTA (REBAMIPIDE) [Concomitant]
  11. HYALONSAN (HYALURONIC ACID) [Concomitant]
  12. DIAMOX [Concomitant]
  13. JUVELA (TOCOPHEROL) [Concomitant]
  14. TRUSOPT [Concomitant]
  15. ASPARA K (ASPARTATE POTASSIUM) [Concomitant]

REACTIONS (1)
  - INTRAOCULAR PRESSURE INCREASED [None]
